FAERS Safety Report 5427801-5 (Version None)
Quarter: 2007Q3

REPORT INFORMATION
  Report Type: 
  Country: None (occurrence: None)
  Receive Date: 20070823
  Receipt Date: 20070816
  Transmission Date: 20080115
  Serious: Yes (Death)
  Sender: FDA-Public Use
  Company Number: 236872K07USA

PATIENT
  Age: 37 Year
  Sex: Female

DRUGS (2)
  1. REBIF [Suspect]
     Indication: MULTIPLE SCLEROSIS
     Dates: start: 20060217, end: 20070803
  2. STEROID (CORTICOSTEROID NOS) [Suspect]

REACTIONS (3)
  - HAEMORRHAGE [None]
  - LOSS OF CONSCIOUSNESS [None]
  - OPTIC NEURITIS [None]
